FAERS Safety Report 9157326 (Version 2)
Quarter: 2013Q2

REPORT INFORMATION
  Report Type: Spontaneous
  Country: US (occurrence: US)
  Receive Date: 20130312
  Receipt Date: 20130410
  Transmission Date: 20140414
  Serious: Yes (Hospitalization, Other)
  Sender: FDA-Public Use
  Company Number: US-ASTELLAS-2013US002658

PATIENT
  Age: 65 Year
  Sex: Male

DRUGS (6)
  1. XTANDI [Suspect]
     Indication: PROSTATE CANCER
     Dosage: 160 MG, UID/QD
     Route: 048
     Dates: start: 20121009, end: 201212
  2. LORAZEPAM [Concomitant]
     Indication: NAUSEA
     Dosage: 0.5 MG, TID PRN
     Route: 048
  3. DURAGESIC                          /00070401/ [Concomitant]
     Indication: PAIN MANAGEMENT
     Dosage: 1 DF, EVERY 72 HOURS
     Route: 062
  4. GABAPENTIN [Concomitant]
     Indication: NEURALGIA
     Dosage: 100 MG, TID
     Route: 048
  5. FLEXERIL                           /00428402/ [Concomitant]
     Indication: MUSCLE RELAXANT THERAPY
     Dosage: 5 MG, QHS
     Route: 048
  6. LOMOTIL [Concomitant]
     Indication: DIARRHOEA
     Dosage: 0.025-2.5 MG, PRN
     Route: 048

REACTIONS (26)
  - Adverse event [Unknown]
  - Cancer pain [Unknown]
  - Malignant neoplasm progression [Unknown]
  - Fall [Unknown]
  - Weight fluctuation [Unknown]
  - Muscle spasms [Recovered/Resolved]
  - Joint range of motion decreased [Recovered/Resolved]
  - Electrolyte imbalance [Unknown]
  - Anaemia of malignant disease [Unknown]
  - Ecchymosis [Unknown]
  - Decreased appetite [Unknown]
  - Nausea [Unknown]
  - Abdominal distension [Unknown]
  - Constipation [Unknown]
  - Malnutrition [Unknown]
  - Vomiting [Unknown]
  - Dehydration [Unknown]
  - General physical health deterioration [Unknown]
  - Pain in extremity [Unknown]
  - Fatigue [Unknown]
  - Arthralgia [Unknown]
  - Joint stiffness [Recovered/Resolved]
  - Myalgia [Recovered/Resolved]
  - Muscular weakness [Unknown]
  - Prostatic specific antigen increased [Unknown]
  - Spinal pain [Unknown]
